FAERS Safety Report 19587518 (Version 2)
Quarter: 2021Q3

REPORT INFORMATION
  Report Type: Spontaneous
  Country: JP (occurrence: JP)
  Receive Date: 20210721
  Receipt Date: 20210826
  Transmission Date: 20211014
  Serious: Yes (Other)
  Sender: FDA-Public Use
  Company Number: NVSJ2021JP010011

PATIENT
  Age: 79 Year
  Sex: Male

DRUGS (2)
  1. TAFINLAR [Suspect]
     Active Substance: DABRAFENIB MESYLATE
     Indication: MALIGNANT MELANOMA STAGE II
     Dosage: UNK
     Route: 048
     Dates: start: 20200623
  2. MEKINIST [Suspect]
     Active Substance: TRAMETINIB DIMETHYL SULFOXIDE
     Indication: MALIGNANT MELANOMA STAGE II
     Dosage: UNK
     Route: 048

REACTIONS (8)
  - Feeding disorder [Recovered/Resolved]
  - Lymphocyte count decreased [Unknown]
  - White blood cell count decreased [Unknown]
  - Pyrexia [Recovered/Resolved]
  - Malaise [Recovering/Resolving]
  - Oral pain [Recovering/Resolving]
  - Hepatic function abnormal [Unknown]
  - Mucosal disorder [Recovering/Resolving]

NARRATIVE: CASE EVENT DATE: 20200701
